FAERS Safety Report 20631574 (Version 1)
Quarter: 2022Q1

REPORT INFORMATION
  Report Type: Spontaneous
  Country: US (occurrence: None)
  Receive Date: 20220324
  Receipt Date: 20220324
  Transmission Date: 20220424
  Serious: No
  Sender: FDA-Public Use
  Company Number: None

PATIENT
  Sex: Female

DRUGS (1)
  1. RASUVO [Suspect]
     Active Substance: METHOTREXATE SODIUM
     Indication: Rheumatoid arthritis
     Dosage: 20 MG/0.4 ML EVERY WEEK
     Route: 058
     Dates: start: 20220211

REACTIONS (5)
  - Injection site bruising [None]
  - Rheumatoid arthritis [None]
  - Therapy interrupted [None]
  - Injection site pain [None]
  - Injection related reaction [None]
